FAERS Safety Report 9226125 (Version 2)
Quarter: 2013Q2

REPORT INFORMATION
  Report Type: Spontaneous
  Country: US (occurrence: US)
  Receive Date: 20130411
  Receipt Date: 20130417
  Transmission Date: 20140414
  Serious: Yes (Other)
  Sender: FDA-Public Use
  Company Number: US-ROXANE LABORATORIES, INC.-2013-RO-00476RO

PATIENT
  Sex: Female

DRUGS (3)
  1. LITHIUM CARBONATE [Suspect]
     Indication: BIPOLAR DISORDER
     Dosage: 450 MG
     Route: 048
     Dates: start: 201303, end: 201303
  2. LITHIUM CARBONATE [Suspect]
     Dosage: 300 MG
     Route: 048
     Dates: start: 201303
  3. LEVOTHYROXINE [Concomitant]
     Indication: HYPERTHYROIDISM

REACTIONS (3)
  - Intestinal haemorrhage [Recovered/Resolved]
  - Swelling face [Recovered/Resolved]
  - Joint swelling [Recovered/Resolved]
